FAERS Safety Report 9102967 (Version 1)
Quarter: 2013Q1

REPORT INFORMATION
  Report Type: Spontaneous
  Country: ES (occurrence: ES)
  Receive Date: 20130219
  Receipt Date: 20130219
  Transmission Date: 20140127
  Serious: Yes (Hospitalization)
  Sender: FDA-Public Use
  Company Number: ES-ELI_LILLY_AND_COMPANY-ES201302003054

PATIENT
  Age: 67 Year
  Sex: Female

DRUGS (1)
  1. FORSTEO [Suspect]
     Dosage: 20 UG, QD
     Dates: start: 20130115

REACTIONS (3)
  - Femur fracture [Unknown]
  - Fall [Unknown]
  - Procedural haemorrhage [Recovered/Resolved]
